FAERS Safety Report 5367134-9 (Version None)
Quarter: 2007Q2

REPORT INFORMATION
  Report Type: 
  Country: None (occurrence: None)
  Receive Date: 20070622
  Receipt Date: 20060914
  Transmission Date: 20071010
  Serious: No
  Sender: FDA-Public Use
  Company Number: US-BRISTOL-MYERS SQUIBB COMPANY-13509476

PATIENT
  Age: 65 Year
  Sex: Female

DRUGS (4)
  1. SINEMET [Suspect]
     Indication: RESTLESS LEGS SYNDROME
     Dosage: DOSAGE: SINEMET 25MG/100MG TABLETS DAILY, ORALLY
     Route: 048
  2. ESTRADIOL [Concomitant]
  3. LEVOTHROID [Concomitant]
  4. TRAZODONE HCL [Concomitant]

REACTIONS (1)
  - NIGHT SWEATS [None]
